FAERS Safety Report 8508078-0 (Version None)
Quarter: 2012Q3

REPORT INFORMATION
  Report Type: 
  Country: None (occurrence: None)
  Receive Date: 20120713
  Receipt Date: 20120705
  Transmission Date: 20120928
  Serious: Yes (Other)
  Sender: FDA-Public Use
  Company Number: US-FOUGERA-2012FO001238

PATIENT
  Sex: Female

DRUGS (10)
  1. DIPHENOXYLATE HCL + ATROPINE SULFATE [Concomitant]
     Indication: DIARRHOEA
     Route: 048
  2. PAMINE FORTE [Suspect]
     Indication: DIARRHOEA
     Route: 048
  3. PLAVIX [Concomitant]
     Indication: ANTICOAGULANT THERAPY
     Route: 048
     Dates: start: 20050101
  4. ESOMEPRAZOLE [Concomitant]
     Indication: GASTROOESOPHAGEAL REFLUX DISEASE
     Route: 048
  5. TEGRETOL [Concomitant]
     Indication: MENTAL DISABILITY
     Route: 048
     Dates: start: 19990101
  6. EFFEXOR [Concomitant]
     Route: 048
  7. HORMONES [Concomitant]
     Indication: HORMONE THERAPY
  8. PAMINE FORTE [Suspect]
     Indication: COLITIS
     Route: 048
  9. TEGRETOL [Concomitant]
     Indication: BIPOLAR I DISORDER
     Route: 048
     Dates: start: 19990101
  10. EFFEXOR [Concomitant]
     Indication: DEPRESSION
     Route: 048

REACTIONS (8)
  - SPINAL DISORDER [None]
  - OFF LABEL USE [None]
  - PAIN [None]
  - ARTHROPATHY [None]
  - ASTHMA [None]
  - CHRONIC OBSTRUCTIVE PULMONARY DISEASE [None]
  - BRAIN STEM STROKE [None]
  - GAIT DISTURBANCE [None]
